FAERS Safety Report 19814316 (Version 2)
Quarter: 2021Q3

REPORT INFORMATION
  Report Type: Spontaneous
  Country: CN (occurrence: CN)
  Receive Date: 20210910
  Receipt Date: 20210915
  Transmission Date: 20211014
  Serious: Yes (Hospitalization, Other)
  Sender: FDA-Public Use
  Company Number: CN-ASTRAZENECA-2021A714884

PATIENT
  Age: 64 Year
  Sex: Male
  Weight: 83 kg

DRUGS (2)
  1. INSULIN [Concomitant]
     Active Substance: INSULIN NOS
     Dates: end: 20210823
  2. FORXIGA [Suspect]
     Active Substance: DAPAGLIFLOZIN
     Indication: SYMPTOMATIC TREATMENT
     Route: 048
     Dates: start: 20210501, end: 20210823

REACTIONS (2)
  - Diabetic ketoacidosis [Recovering/Resolving]
  - Condition aggravated [Unknown]

NARRATIVE: CASE EVENT DATE: 20210825
